FAERS Safety Report 5627178-6 (Version None)
Quarter: 2008Q1

REPORT INFORMATION
  Report Type: 
  Country: None (occurrence: None)
  Receive Date: 20080215
  Receipt Date: 20080206
  Transmission Date: 20080703
  Serious: Yes (Disabling)
  Sender: FDA-Public Use
  Company Number: GB-TEVA-167323ISR

PATIENT
  Age: 68 Year
  Sex: Female
  Weight: 60 kg

DRUGS (2)
  1. PREDNISOLONE [Suspect]
  2. ADALIMUMAB [Suspect]
     Indication: RHEUMATOID ARTHRITIS
     Route: 058
     Dates: start: 20060601

REACTIONS (5)
  - FOLLICULITIS [None]
  - PAIN [None]
  - RASH MACULO-PAPULAR [None]
  - RASH PAPULAR [None]
  - URTICARIA [None]
